FAERS Safety Report 8815068 (Version 4)
Quarter: 2015Q3

REPORT INFORMATION
  Report Type: Report from Study
  Country: US (occurrence: US)
  Receive Date: 20120928
  Receipt Date: 20150903
  Transmission Date: 20151125
  Serious: Yes (Other)
  Sender: FDA-Public Use
  Company Number: US-ROCHE-1129213

PATIENT
  Age: 53 Year
  Sex: Female
  Weight: 66 kg

DRUGS (67)
  1. AVASTIN [Suspect]
     Active Substance: BEVACIZUMAB
     Indication: BREAST CANCER METASTATIC
     Route: 042
     Dates: start: 20050706, end: 20050707
  2. HERCEPTIN [Suspect]
     Active Substance: TRASTUZUMAB
     Indication: BREAST CANCER FEMALE
     Dosage: LOADING DOSE
     Route: 042
     Dates: start: 19990107, end: 19990402
  3. HERCEPTIN [Suspect]
     Active Substance: TRASTUZUMAB
     Route: 042
  4. CARBOPLATIN. [Concomitant]
     Active Substance: CARBOPLATIN
     Dosage: CARBOPLATIN/GEMCITABINE (6 CYCLE) START AND STOP DATES NOT REPORTED BUT ADMINISTERED ON 08NOV20+
     Route: 065
  5. ABRAXANE [Concomitant]
     Active Substance: PACLITAXEL
     Route: 065
  6. BENADRYL [Concomitant]
     Active Substance: DIPHENHYDRAMINE HYDROCHLORIDE
     Route: 065
  7. DECADRON [Concomitant]
     Active Substance: DEXAMETHASONE
     Route: 065
  8. MAGNESIUM SULPHATE [Concomitant]
     Active Substance: MAGNESIUM SULFATE
     Route: 065
  9. ANZEMET [Concomitant]
     Active Substance: DOLASETRON MESYLATE
     Route: 065
  10. TAXOL [Concomitant]
     Active Substance: PACLITAXEL
     Route: 065
  11. GEMZAR [Concomitant]
     Active Substance: GEMCITABINE HYDROCHLORIDE
     Route: 065
  12. REGLAN [Concomitant]
     Active Substance: METOCLOPRAMIDE HYDROCHLORIDE
     Route: 065
     Dates: start: 20030428
  13. ZOMETA [Concomitant]
     Active Substance: ZOLEDRONIC ACID
     Route: 042
  14. PROCRIT [Concomitant]
     Active Substance: ERYTHROPOIETIN
  15. HERCEPTIN [Suspect]
     Active Substance: TRASTUZUMAB
     Route: 042
     Dates: start: 200008, end: 200012
  16. HERCEPTIN [Suspect]
     Active Substance: TRASTUZUMAB
     Route: 042
     Dates: start: 19990407, end: 20021216
  17. LOTENSIN (UNITED STATES) [Concomitant]
  18. INFLUENZA VACCINE [Concomitant]
     Active Substance: INFLUENZA VIRUS VACCINE
  19. ZYRTEC [Concomitant]
     Active Substance: CETIRIZINE HYDROCHLORIDE
  20. CISPLATIN. [Concomitant]
     Active Substance: CISPLATIN
     Route: 065
  21. NAVELBINE [Concomitant]
     Active Substance: VINORELBINE TARTRATE
  22. TAXOTERE [Concomitant]
     Active Substance: DOCETAXEL
     Route: 065
  23. AVASTIN [Suspect]
     Active Substance: BEVACIZUMAB
     Route: 042
  24. XELODA [Suspect]
     Active Substance: CAPECITABINE
     Dosage: 21-28 DAYS
     Route: 065
  25. CISPLATIN. [Concomitant]
     Active Substance: CISPLATIN
     Route: 065
     Dates: start: 20000512, end: 20000728
  26. BENADRYL [Concomitant]
     Active Substance: DIPHENHYDRAMINE HYDROCHLORIDE
     Route: 065
  27. BENADRYL [Concomitant]
     Active Substance: DIPHENHYDRAMINE HYDROCHLORIDE
     Route: 065
  28. DECADRON [Concomitant]
     Active Substance: DEXAMETHASONE
     Route: 065
  29. MAGNESIUM SULPHATE [Concomitant]
     Active Substance: MAGNESIUM SULFATE
     Route: 065
  30. TAXOL [Concomitant]
     Active Substance: PACLITAXEL
     Route: 065
     Dates: start: 19990107, end: 19990402
  31. GEMZAR [Concomitant]
     Active Substance: GEMCITABINE HYDROCHLORIDE
     Route: 065
     Dates: start: 20000512, end: 20000728
  32. TAXOTERE [Concomitant]
     Active Substance: DOCETAXEL
     Dosage: 11, 18, 15, 28 DAYS
     Route: 065
  33. AVASTIN [Suspect]
     Active Substance: BEVACIZUMAB
     Indication: BREAST CANCER FEMALE
     Route: 042
     Dates: start: 20050706, end: 20050706
  34. XELODA [Suspect]
     Active Substance: CAPECITABINE
     Indication: BREAST CANCER FEMALE
     Route: 065
     Dates: end: 200406
  35. HERCEPTIN [Suspect]
     Active Substance: TRASTUZUMAB
     Route: 042
     Dates: start: 199904, end: 200003
  36. HERCEPTIN [Suspect]
     Active Substance: TRASTUZUMAB
     Route: 042
     Dates: start: 200209, end: 200212
  37. HERCEPTIN [Suspect]
     Active Substance: TRASTUZUMAB
     Route: 042
  38. HERCEPTIN [Suspect]
     Active Substance: TRASTUZUMAB
     Dosage: MAINTAINANCE DOSE
     Route: 042
  39. ABRAXANE [Concomitant]
     Active Substance: PACLITAXEL
     Dosage: 3 WEEKS, WEEK OFF, 1,15, 21 DAYS
     Route: 065
  40. MEDROL [Concomitant]
     Active Substance: METHYLPREDNISOLONE
  41. TAGAMET [Concomitant]
     Active Substance: CIMETIDINE
     Route: 065
  42. MANNITOL. [Concomitant]
     Active Substance: MANNITOL
     Route: 065
  43. AMARYL [Concomitant]
     Active Substance: GLIMEPIRIDE
  44. PREVACID [Concomitant]
     Active Substance: LANSOPRAZOLE
  45. ATIVAN [Concomitant]
     Active Substance: LORAZEPAM
     Route: 065
  46. XELODA [Suspect]
     Active Substance: CAPECITABINE
     Route: 065
     Dates: start: 200407, end: 200410
  47. XELODA [Suspect]
     Active Substance: CAPECITABINE
     Dosage: 15-21 DAYS
     Route: 065
  48. ABRAXANE [Concomitant]
     Active Substance: PACLITAXEL
     Route: 065
  49. ABRAXANE [Concomitant]
     Active Substance: PACLITAXEL
     Route: 065
  50. EPOGEN [Concomitant]
     Active Substance: ERYTHROPOIETIN
     Route: 058
  51. TAXOL [Concomitant]
     Active Substance: PACLITAXEL
     Dosage: 3 TIMES
     Route: 065
  52. TAXOL [Concomitant]
     Active Substance: PACLITAXEL
     Route: 065
  53. CIMETIDINE [Concomitant]
     Active Substance: CIMETIDINE
  54. ABRAXANE [Concomitant]
     Active Substance: PACLITAXEL
     Route: 065
  55. TYLENOL [Concomitant]
     Active Substance: ACETAMINOPHEN
     Route: 065
  56. TAXOL [Concomitant]
     Active Substance: PACLITAXEL
     Route: 065
     Dates: start: 19961217, end: 199704
  57. TAXOL [Concomitant]
     Active Substance: PACLITAXEL
     Route: 065
  58. EFFEXOR [Concomitant]
     Active Substance: VENLAFAXINE HYDROCHLORIDE
  59. BENADRYL [Concomitant]
     Active Substance: DIPHENHYDRAMINE HYDROCHLORIDE
     Route: 065
  60. NAVELBINE [Concomitant]
     Active Substance: VINORELBINE TARTRATE
  61. COUMADINE [Concomitant]
     Active Substance: WARFARIN SODIUM
     Route: 065
  62. AVASTIN [Suspect]
     Active Substance: BEVACIZUMAB
     Route: 042
     Dates: start: 20050627
  63. CISPLATIN. [Concomitant]
     Active Substance: CISPLATIN
     Route: 065
  64. KYTRIL [Concomitant]
     Active Substance: GRANISETRON HYDROCHLORIDE
     Route: 065
  65. DECADRON [Concomitant]
     Active Substance: DEXAMETHASONE
     Route: 065
  66. ATIVAN [Concomitant]
     Active Substance: LORAZEPAM
     Route: 065
  67. NEUPOGEN [Concomitant]
     Active Substance: FILGRASTIM
     Dosage: DAY 3 THROUGH OUT DAY 10
     Route: 065

REACTIONS (38)
  - Erythema [Recovered/Resolved]
  - Off label use [Unknown]
  - Erythema [Unknown]
  - Chest discomfort [Unknown]
  - Disease progression [Unknown]
  - Palmar-plantar erythrodysaesthesia syndrome [Unknown]
  - Change of bowel habit [Unknown]
  - Blindness [Unknown]
  - Hypertension [Recovered/Resolved]
  - Weight decreased [Unknown]
  - Nausea [Unknown]
  - Fluid retention [Unknown]
  - Pancreatitis [Recovered/Resolved]
  - Abdominal discomfort [Recovered/Resolved]
  - Oropharyngeal pain [Unknown]
  - Abdominal distension [Unknown]
  - Musculoskeletal pain [Unknown]
  - Fatigue [Unknown]
  - Influenza like illness [Unknown]
  - Abdominal pain [Unknown]
  - Arthritis [Unknown]
  - Staphylococcal infection [Unknown]
  - Pleural effusion [Recovered/Resolved]
  - Ejection fraction decreased [Recovered/Resolved]
  - Hypertension [Unknown]
  - Abdominal pain upper [Unknown]
  - Alopecia [Unknown]
  - Pleuritic pain [Unknown]
  - Wheezing [Unknown]
  - Deafness [Unknown]
  - Dyspnoea [Recovered/Resolved]
  - Dyspepsia [Unknown]
  - Cellulitis [Unknown]
  - Acquired diaphragmatic eventration [Unknown]
  - Abdominal tenderness [Unknown]
  - Vomiting [Unknown]
  - Migraine with aura [Unknown]
  - Inflammation [Unknown]

NARRATIVE: CASE EVENT DATE: 20050706
